FAERS Safety Report 7207919-7 (Version None)
Quarter: 2010Q4

REPORT INFORMATION
  Report Type: 
  Country: None (occurrence: None)
  Receive Date: 20101221
  Receipt Date: 20101203
  Transmission Date: 20110411
  Serious: Yes (Death)
  Sender: FDA-Public Use
  Company Number: JPI-P-013164

PATIENT
  Age: 28 Year
  Sex: Female
  Weight: 72.5755 kg

DRUGS (11)
  1. XYREM [Suspect]
     Indication: FIBROMYALGIA
     Dosage: (4.5 GM (2.25 GM, 2 IN 1 D), ORAL) (9 GM, 2 IN 1 D, ORAL) (10 GM, 5 GM, 2 IN 1 D, ORAL) (5 GM FIRST
     Route: 048
     Dates: start: 20100628, end: 20101021
  2. XYREM [Suspect]
     Indication: NARCOLEPSY
     Dosage: (4.5 GM (2.25 GM, 2 IN 1 D), ORAL) (9 GM, 2 IN 1 D, ORAL) (10 GM, 5 GM, 2 IN 1 D, ORAL) (5 GM FIRST
     Route: 048
     Dates: start: 20100628, end: 20101021
  3. XYREM [Suspect]
     Indication: FIBROMYALGIA
     Dosage: (4.5 GM (2.25 GM, 2 IN 1 D), ORAL) (9 GM, 2 IN 1 D, ORAL) (10 GM, 5 GM, 2 IN 1 D, ORAL) (5 GM FIRST
     Route: 048
     Dates: start: 20101022, end: 20101118
  4. XYREM [Suspect]
     Indication: NARCOLEPSY
     Dosage: (4.5 GM (2.25 GM, 2 IN 1 D), ORAL) (9 GM, 2 IN 1 D, ORAL) (10 GM, 5 GM, 2 IN 1 D, ORAL) (5 GM FIRST
     Route: 048
     Dates: start: 20101022, end: 20101118
  5. XYREM [Suspect]
     Indication: FIBROMYALGIA
     Dosage: (4.5 GM (2.25 GM, 2 IN 1 D), ORAL) (9 GM, 2 IN 1 D, ORAL) (10 GM, 5 GM, 2 IN 1 D, ORAL) (5 GM FIRST
     Route: 048
     Dates: start: 20101119, end: 20101126
  6. XYREM [Suspect]
     Indication: NARCOLEPSY
     Dosage: (4.5 GM (2.25 GM, 2 IN 1 D), ORAL) (9 GM, 2 IN 1 D, ORAL) (10 GM, 5 GM, 2 IN 1 D, ORAL) (5 GM FIRST
     Route: 048
     Dates: start: 20101119, end: 20101126
  7. XYREM [Suspect]
     Indication: FIBROMYALGIA
     Dosage: (4.5 GM (2.25 GM, 2 IN 1 D), ORAL) (9 GM, 2 IN 1 D, ORAL) (10 GM, 5 GM, 2 IN 1 D, ORAL) (5 GM FIRST
     Route: 048
     Dates: start: 20101127
  8. XYREM [Suspect]
     Indication: NARCOLEPSY
     Dosage: (4.5 GM (2.25 GM, 2 IN 1 D), ORAL) (9 GM, 2 IN 1 D, ORAL) (10 GM, 5 GM, 2 IN 1 D, ORAL) (5 GM FIRST
     Route: 048
     Dates: start: 20101127
  9. DULOXETINE HYDROCHLORIDE [Concomitant]
  10. VENLAFAXINE HYDROCHLORIDE [Concomitant]
  11. MULTIPLE UNSPECIFIED MEDICATIONS [Concomitant]

REACTIONS (10)
  - CHILLS [None]
  - HEADACHE [None]
  - HYPERTENSION [None]
  - INSOMNIA [None]
  - MALAISE [None]
  - MYALGIA [None]
  - NAUSEA [None]
  - NEPHROLITHIASIS [None]
  - SOMNOLENCE [None]
  - VOMITING [None]
